FAERS Safety Report 13268953 (Version 3)
Quarter: 2017Q2

REPORT INFORMATION
  Report Type: Spontaneous
  Country: ES (occurrence: ES)
  Receive Date: 20170224
  Receipt Date: 20170405
  Transmission Date: 20170830
  Serious: Yes (Other)
  Sender: FDA-Public Use
  Company Number: ES-SAOL THERAPEUTICS-2017SAO00373

PATIENT
  Age: 55 Year
  Sex: Female

DRUGS (1)
  1. LIORESAL [Suspect]
     Active Substance: BACLOFEN
     Dosage: 450 ?G, \DAY
     Route: 037

REACTIONS (1)
  - Therapy non-responder [Recovered/Resolved]
